FAERS Safety Report 9484214 (Version 1)
Quarter: 2013Q3

REPORT INFORMATION
  Report Type: Spontaneous
  Country: US (occurrence: US)
  Receive Date: 20130828
  Receipt Date: 20130828
  Transmission Date: 20140515
  Serious: Yes (Other)
  Sender: FDA-Public Use
  Company Number: US-AMGEN-KDL393640

PATIENT
  Age: 45 Year
  Sex: Female

DRUGS (1)
  1. ENBREL [Suspect]
     Indication: RHEUMATOID ARTHRITIS
     Dosage: 50 MG, QWK
     Route: 058
     Dates: start: 20090801

REACTIONS (7)
  - Blindness [Unknown]
  - Vision blurred [Unknown]
  - Eye pain [Unknown]
  - Hypoaesthesia [Not Recovered/Not Resolved]
  - Lymphadenopathy [Unknown]
  - Paraesthesia [Not Recovered/Not Resolved]
  - Upper respiratory tract infection [Unknown]
